FAERS Safety Report 24540544 (Version 1)
Quarter: 2024Q4

REPORT INFORMATION
  Report Type: Spontaneous
  Country: US (occurrence: US)
  Receive Date: 20241023
  Receipt Date: 20241023
  Transmission Date: 20250115
  Serious: Yes (Hospitalization)
  Sender: NIVAGEN PHARMACEUTICALS INC
  Company Number: US-NPI-000048

PATIENT
  Age: 22 Year
  Sex: Female

DRUGS (2)
  1. GLYCOPYRROLATE [Suspect]
     Active Substance: GLYCOPYRROLATE
     Indication: Hyperhidrosis
     Dosage: ORAL GLYCOPYRROLATE TABLETS
     Route: 048
  2. GLYCOPYRROLATE [Suspect]
     Active Substance: GLYCOPYRROLATE
     Indication: Hyperhidrosis
     Dosage: TOPICAL EXPOSURE TO GLYCOPYRROLATE TABLETS
     Route: 061

REACTIONS (5)
  - Anisocoria [Recovered/Resolved]
  - Hypoaesthesia [Recovered/Resolved]
  - Accidental exposure to product [Recovered/Resolved]
  - Asthenia [Unknown]
  - Mydriasis [Unknown]
